FAERS Safety Report 4694533-0 (Version None)
Quarter: 2005Q2

REPORT INFORMATION
  Report Type: 
  Country: None (occurrence: None)
  Receive Date: 20050620
  Receipt Date: 20050607
  Transmission Date: 20051028
  Serious: Yes (Other)
  Sender: FDA-Public Use
  Company Number: US-GLAXOSMITHKLINE-A0561592A

PATIENT
  Age: 71 Year
  Sex: Female
  Weight: 90 kg

DRUGS (4)
  1. CITRUCEL SUGAR-FREE SUSPENSION ORANGE [Suspect]
     Indication: CHANGE OF BOWEL HABIT
     Route: 048
     Dates: start: 20050528, end: 20050607
  2. CLARITIN-D [Concomitant]
  3. ASPIRIN [Concomitant]
     Dosage: 81MG PER DAY
  4. FISH OIL CAPSULES [Concomitant]

REACTIONS (2)
  - ASTHMA [None]
  - WHEEZING [None]
